FAERS Safety Report 11717121 (Version 3)
Quarter: 2015Q4

REPORT INFORMATION
  Report Type: Spontaneous
  Country: US (occurrence: US)
  Receive Date: 20151104
  Receipt Date: 20151120
  Transmission Date: 20160304
  Serious: No
  Sender: FDA-Public Use
  Company Number: US-ELI_LILLY_AND_COMPANY-US200710004004

PATIENT
  Age: 73 Year
  Sex: Female

DRUGS (9)
  1. FORTEO [Suspect]
     Active Substance: TERIPARATIDE
     Indication: OSTEOPOROSIS
     Dosage: 20 UG, QD
     Dates: start: 2008
  2. FORTEO [Suspect]
     Active Substance: TERIPARATIDE
     Dosage: 20 UG, QD
     Dates: start: 2008
  3. VITAMIN D [Concomitant]
     Active Substance: CHOLECALCIFEROL
     Indication: OSTEOPOROSIS
  4. IBUPROFEN. [Concomitant]
     Active Substance: IBUPROFEN
     Indication: INFLAMMATION
  5. FORTEO [Suspect]
     Active Substance: TERIPARATIDE
     Dosage: 20 UG, QD
     Dates: end: 2008
  6. CALCIUM [Concomitant]
     Active Substance: CALCIUM
     Indication: OSTEOPOROSIS
  7. STATIN                             /00084401/ [Concomitant]
     Indication: BLOOD CHOLESTEROL
  8. FORTEO [Suspect]
     Active Substance: TERIPARATIDE
     Dosage: 20 UG, QD
     Dates: start: 201108
  9. ANALGESICS [Concomitant]
     Active Substance: UNSPECIFIED INGREDIENT

REACTIONS (26)
  - Fall [Recovered/Resolved]
  - Arthritis [Unknown]
  - Pain [Not Recovered/Not Resolved]
  - Joint dislocation [Recovered/Resolved]
  - Musculoskeletal stiffness [Not Recovered/Not Resolved]
  - Respiratory tract congestion [Unknown]
  - Rotator cuff syndrome [Recovered/Resolved]
  - Musculoskeletal pain [Unknown]
  - Gastrointestinal disorder [Unknown]
  - Arthralgia [Recovered/Resolved]
  - Bone disorder [Recovered/Resolved]
  - Exostosis [Recovered/Resolved]
  - Exostosis [Unknown]
  - Wrist fracture [Unknown]
  - Arthritis [Not Recovered/Not Resolved]
  - Arthritis [Unknown]
  - Rotator cuff syndrome [Recovered/Resolved]
  - Skeletal injury [Recovering/Resolving]
  - Pain [Recovered/Resolved]
  - Vitamin D decreased [Unknown]
  - Fall [Recovering/Resolving]
  - Memory impairment [Unknown]
  - Neck pain [Not Recovered/Not Resolved]
  - Upper limb fracture [Recovering/Resolving]
  - Joint injury [Recovered/Resolved]
  - Arthropathy [Unknown]

NARRATIVE: CASE EVENT DATE: 2007
